FAERS Safety Report 8551725-8 (Version None)
Quarter: 2012Q3

REPORT INFORMATION
  Report Type: 
  Country: None (occurrence: None)
  Receive Date: 20120723
  Receipt Date: 20120723
  Transmission Date: 20120928
  Serious: Yes (Hospitalization, Other)
  Sender: FDA-Public Use
  Company Number: None

PATIENT
  Sex: Female

DRUGS (6)
  1. VOLTAREN [Suspect]
     Indication: PROCEDURAL PAIN
     Dosage: 1% 3 TIMES A DAY TRANSDERMAL
     Route: 062
  2. VOLTAREN [Suspect]
     Indication: ROTATOR CUFF SYNDROME
     Dosage: 1% 3 TIMES A DAY TRANSDERMAL
     Route: 062
  3. KEPPRA [Concomitant]
  4. NADOLOL [Concomitant]
  5. LAMICTAL [Concomitant]
  6. SIMVASTATIN [Concomitant]

REACTIONS (1)
  - APPLICATION SITE VESICLES [None]
